FAERS Safety Report 21041389 (Version 1)
Quarter: 2022Q3

REPORT INFORMATION
  Report Type: Spontaneous
  Country: US (occurrence: US)
  Receive Date: 20220705
  Receipt Date: 20220705
  Transmission Date: 20221027
  Serious: No
  Sender: FDA-Public Use
  Company Number: US-drreddys-SPO/USA/22/0151695

PATIENT
  Age: 18 Year
  Sex: Female

DRUGS (1)
  1. ZENATANE [Suspect]
     Active Substance: ISOTRETINOIN
     Indication: Acne cystic
     Dosage: RMA ISSUE DATE: 10 MARCH 2022 10:34:17 AM, 15 APRIL 2022  12:07:32 PM, 19 MAY 2022 08:53:27 AM

REACTIONS (2)
  - Back pain [Unknown]
  - Product use in unapproved indication [Unknown]
